FAERS Safety Report 23542214 (Version 1)
Quarter: 2024Q1

REPORT INFORMATION
  Report Type: Spontaneous
  Country: US (occurrence: None)
  Receive Date: 20240220
  Receipt Date: 20240220
  Transmission Date: 20240409
  Serious: No
  Sender: FDA-Public Use
  Company Number: US-ROCHE-3471215

PATIENT
  Sex: Female

DRUGS (7)
  1. ROZLYTREK [Suspect]
     Active Substance: ENTRECTINIB
     Indication: Non-small cell lung cancer
     Dosage: 2 DAILY ;ONGOING: YES
     Route: 048
  2. ROZLYTREK [Suspect]
     Active Substance: ENTRECTINIB
     Dosage: ;ONGOING: YES
     Route: 048
  3. ROZLYTREK [Suspect]
     Active Substance: ENTRECTINIB
     Dosage: 3 DAILY ;ONGOING: YES
     Route: 048
  4. AMLODIPINE [Concomitant]
     Active Substance: AMLODIPINE BESYLATE
     Indication: Hypertension
     Route: 048
  5. HYDRALAZINE [Concomitant]
     Active Substance: HYDRALAZINE HYDROCHLORIDE
     Indication: Hypertension
     Route: 048
  6. FUROSEMIDE [Concomitant]
     Active Substance: FUROSEMIDE
  7. MIRTAZAPINE [Concomitant]
     Active Substance: MIRTAZAPINE
     Indication: Anxiety
     Route: 048

REACTIONS (11)
  - Ill-defined disorder [Recovered/Resolved]
  - Dyskinesia [Not Recovered/Not Resolved]
  - Grip strength decreased [Unknown]
  - Gait disturbance [Recovered/Resolved]
  - Dyskinesia [Unknown]
  - Peripheral swelling [Not Recovered/Not Resolved]
  - Wheezing [Unknown]
  - Asthenia [Not Recovered/Not Resolved]
  - Tremor [Unknown]
  - Weight increased [Recovered/Resolved]
  - Hypersomnia [Not Recovered/Not Resolved]
